FAERS Safety Report 14372331 (Version 1)
Quarter: 2018Q1

REPORT INFORMATION
  Report Type: Spontaneous
  Country: US (occurrence: US)
  Receive Date: 20180110
  Receipt Date: 20180110
  Transmission Date: 20180509
  Serious: Yes (Hospitalization, Other)
  Sender: FDA-Public Use
  Company Number: US-LUPIN PHARMACEUTICALS INC.-2017-07806

PATIENT
  Age: 42 Year
  Sex: Female

DRUGS (1)
  1. MORPHINE [Suspect]
     Active Substance: MORPHINE
     Indication: PRODUCT USED FOR UNKNOWN INDICATION
     Dosage: UNK
     Route: 037

REACTIONS (6)
  - Granuloma [Unknown]
  - Asthenia [Unknown]
  - Urinary retention [Unknown]
  - Constipation [Unknown]
  - Anaesthesia [Unknown]
  - Radiculopathy [Unknown]
